FAERS Safety Report 8116715-8 (Version None)
Quarter: 2012Q1

REPORT INFORMATION
  Report Type: 
  Country: None (occurrence: None)
  Receive Date: 20120206
  Receipt Date: 20120130
  Transmission Date: 20120608
  Serious: Yes (Hospitalization, Other)
  Sender: FDA-Public Use
  Company Number: PHHY2008CA01846

PATIENT
  Sex: Female

DRUGS (4)
  1. SANDOSTATIN LAR [Suspect]
     Dosage: 30 MG, EVERY 4 WEEKS
     Route: 030
     Dates: start: 20081208
  2. SANDOSTATIN LAR [Suspect]
     Dosage: 30 MG, EVERY 4 WEEKS
     Route: 030
  3. SANDOSTATIN LAR [Suspect]
     Indication: CARCINOID TUMOUR
     Dosage: 30 MG, EVERY 4 WEEKS
     Route: 030
     Dates: start: 20050222
  4. SANDOSTATIN LAR [Suspect]
     Dosage: 30 MG EVERY 4 WEEKS
     Route: 030
     Dates: start: 20100628

REACTIONS (22)
  - GAIT DISTURBANCE [None]
  - PNEUMONIA [None]
  - DIABETES MELLITUS [None]
  - INJECTION SITE MASS [None]
  - INJECTION SITE HAEMORRHAGE [None]
  - HYPERTENSION [None]
  - VOMITING [None]
  - NASOPHARYNGITIS [None]
  - IMMUNE SYSTEM DISORDER [None]
  - MALAISE [None]
  - PYREXIA [None]
  - LABILE BLOOD PRESSURE [None]
  - RASH [None]
  - NAUSEA [None]
  - WEIGHT DECREASED [None]
  - ALOPECIA [None]
  - AMNESIA [None]
  - FATIGUE [None]
  - HYPERHIDROSIS [None]
  - SKIN DEPIGMENTATION [None]
  - HAEMATEMESIS [None]
  - RHINORRHOEA [None]
